FAERS Safety Report 20025787 (Version 1)
Quarter: 2021Q4

REPORT INFORMATION
  Report Type: Spontaneous
  Country: DE (occurrence: DE)
  Receive Date: 20211102
  Receipt Date: 20211102
  Transmission Date: 20220303
  Serious: Yes (Other)
  Sender: FDA-Public Use
  Company Number: DE-ROCHE-2845897

PATIENT
  Age: 72 Year
  Sex: Female
  Weight: 84 kg

DRUGS (7)
  1. COTRIMOXAZOLE [Suspect]
     Active Substance: SULFAMETHOXAZOLE\TRIMETHOPRIM
     Indication: Product used for unknown indication
     Route: 065
  2. ROZLYTREK [Suspect]
     Active Substance: ENTRECTINIB
     Indication: Neoplasm
     Dosage: INTAKE WITH FOOD AND DRINKS:UNIT DOSE:600MILLIGRAM
     Route: 048
  3. ROZLYTREK [Suspect]
     Active Substance: ENTRECTINIB
     Indication: Non-small cell lung cancer metastatic
     Dosage: 200MILLIGRAM
     Route: 048
     Dates: start: 20210628
  4. ROZLYTREK [Suspect]
     Active Substance: ENTRECTINIB
     Dosage: INTAKE WITH FOOD AND DRINKS:UNIT DOSE:200MILLIGRAM
     Route: 048
     Dates: start: 20210625
  5. ROZLYTREK [Suspect]
     Active Substance: ENTRECTINIB
     Dosage: 600MILLIGRAM
     Route: 048
     Dates: start: 20210414, end: 20210620
  6. ROZLYTREK [Suspect]
     Active Substance: ENTRECTINIB
     Dosage: 300MILLIGRAM
     Route: 048
  7. COMIRNATY [Suspect]
     Active Substance: TOZINAMERAN
     Indication: Product used for unknown indication
     Dosage: FIRST AND SECOND VACCINATION
     Route: 065

REACTIONS (15)
  - Capillary leak syndrome [Not Recovered/Not Resolved]
  - Pulmonary oedema [Recovering/Resolving]
  - Pericardial effusion [Unknown]
  - Dyspnoea [Recovering/Resolving]
  - Urinary incontinence [Not Recovered/Not Resolved]
  - Pleural effusion [Unknown]
  - Anal incontinence [Not Recovered/Not Resolved]
  - Joint instability [Not Recovered/Not Resolved]
  - Muscular weakness [Not Recovered/Not Resolved]
  - Visual impairment [Recovering/Resolving]
  - Exercise tolerance decreased [Recovering/Resolving]
  - Therapeutic product effect decreased [Unknown]
  - Vomiting [Recovered/Resolved]
  - Off label use [Unknown]
  - Oedema [Not Recovered/Not Resolved]

NARRATIVE: CASE EVENT DATE: 20210501
